FAERS Safety Report 6924498-X (Version None)
Quarter: 2010Q3

REPORT INFORMATION
  Report Type: 
  Country: None (occurrence: None)
  Receive Date: 20100816
  Receipt Date: 20100804
  Transmission Date: 20110219
  Serious: Yes (Hospitalization, Other)
  Sender: FDA-Public Use
  Company Number: US-BIOGENIDEC-2010BI020603

PATIENT
  Age: 55 Year
  Sex: Female

DRUGS (10)
  1. TYSABRI [Suspect]
     Indication: MULTIPLE SCLEROSIS
     Route: 042
     Dates: start: 20061011
  2. AMANTADINE [Concomitant]
     Indication: FATIGUE
     Route: 048
  3. CELEXA [Concomitant]
     Indication: PRODUCT USED FOR UNKNOWN INDICATION
     Route: 048
  4. SANCTURA [Concomitant]
     Indication: POLLAKIURIA
     Route: 048
  5. SANCTURA [Concomitant]
     Indication: MICTURITION URGENCY
     Route: 048
  6. ZYRTEC [Concomitant]
     Indication: PRODUCT USED FOR UNKNOWN INDICATION
  7. CIPROFLOXACIN [Concomitant]
     Indication: URINARY TRACT INFECTION
  8. FOSAMAX [Concomitant]
     Indication: OSTEOPOROSIS
     Route: 048
  9. ADVIL SINUS [Concomitant]
     Indication: SINUSITIS
  10. NASONEX [Concomitant]
     Indication: PRODUCT USED FOR UNKNOWN INDICATION

REACTIONS (9)
  - BLEPHAROSPASM [None]
  - BREAST CANCER [None]
  - FALL [None]
  - FATIGUE [None]
  - MULTIPLE SCLEROSIS [None]
  - MUSCLE SPASTICITY [None]
  - SINUSITIS [None]
  - TEMPERATURE INTOLERANCE [None]
  - URINARY TRACT INFECTION [None]
